FAERS Safety Report 12634670 (Version 1)
Quarter: 2016Q3

REPORT INFORMATION
  Report Type: Report from Study
  Country: AR (occurrence: MX)
  Receive Date: 20160808
  Receipt Date: 20160808
  Transmission Date: 20161109
  Serious: Yes (Other)
  Sender: FDA-Public Use
  Company Number: AR-ABBVIE-16K-007-1693889-00

PATIENT
  Age: 68 Year
  Sex: Male

DRUGS (1)
  1. HUMIRA [Suspect]
     Active Substance: ADALIMUMAB
     Indication: ANKYLOSING SPONDYLITIS
     Route: 058
     Dates: start: 20160527, end: 20160612

REACTIONS (7)
  - Aphthous ulcer [Not Recovered/Not Resolved]
  - Tympanic membrane perforation [Recovering/Resolving]
  - External ear inflammation [Recovering/Resolving]
  - Pyrexia [Not Recovered/Not Resolved]
  - Deafness [Recovering/Resolving]
  - Pain [Not Recovered/Not Resolved]
  - External ear inflammation [Recovering/Resolving]

NARRATIVE: CASE EVENT DATE: 2016
